FAERS Safety Report 4888334-8 (Version None)
Quarter: 2006Q1

REPORT INFORMATION
  Report Type: 
  Country: None (occurrence: None)
  Receive Date: 20060123
  Receipt Date: 20060119
  Transmission Date: 20060701
  Serious: Yes (Hospitalization)
  Sender: FDA-Public Use
  Company Number: FR-GLAXOSMITHKLINE-B0407278A

PATIENT
  Age: 43 Year
  Sex: Female
  Weight: 45 kg

DRUGS (9)
  1. CLAMOXYL [Suspect]
     Indication: PYELONEPHRITIS
     Route: 048
     Dates: start: 20050103, end: 20050119
  2. IBUPROFEN [Suspect]
     Indication: PYELONEPHRITIS
     Route: 048
     Dates: start: 20050103, end: 20050119
  3. EPIVIR [Concomitant]
     Indication: HIV INFECTION
     Dosage: 1UNIT PER DAY
     Route: 048
     Dates: start: 20020912, end: 20050119
  4. ZIAGEN [Concomitant]
     Indication: HIV INFECTION
     Route: 065
     Dates: end: 20050119
  5. VIRAMUNE [Concomitant]
     Indication: HIV INFECTION
     Dosage: 2UNIT PER DAY
     Route: 048
     Dates: start: 20041125, end: 20050119
  6. ROCEPHIN [Concomitant]
     Indication: PYELONEPHRITIS
     Route: 042
     Dates: start: 20041228, end: 20050103
  7. OFLOCET [Concomitant]
     Indication: PYELONEPHRITIS
     Route: 042
     Dates: start: 20041228, end: 20041230
  8. INTERFERON [Concomitant]
     Indication: HEPATITIS C
     Route: 065
     Dates: end: 20050119
  9. AMIKLIN [Concomitant]
     Route: 065
     Dates: start: 20050118

REACTIONS (6)
  - ASTHENIA [None]
  - BONE MARROW FAILURE [None]
  - CHILLS [None]
  - HYPERHIDROSIS [None]
  - PANCYTOPENIA [None]
  - PYREXIA [None]
